FAERS Safety Report 8964735 (Version 1)
Quarter: 2012Q4

REPORT INFORMATION
  Report Type: 
  Country: US (occurrence: US)
  Receive Date: 20121213
  Receipt Date: 20121213
  Transmission Date: 20130627
  Serious: Yes (Other)
  Sender: FDA-Public Use
  Company Number: US-ASTRAZENECA-2012SE91538

PATIENT
  Sex: Male

DRUGS (4)
  1. SEROQUEL [Suspect]
     Indication: BIPOLAR DISORDER
     Route: 048
     Dates: start: 2004
  2. SEROQUEL [Suspect]
     Indication: SLEEP DISORDER
     Route: 048
     Dates: start: 2004
  3. NAMENDA [Concomitant]
     Indication: DEMENTIA
     Route: 048
     Dates: start: 201211
  4. ADVIL [Concomitant]
     Indication: AGGRESSION
     Route: 048

REACTIONS (2)
  - Suicidal ideation [Unknown]
  - Delusion of grandeur [Not Recovered/Not Resolved]
